FAERS Safety Report 9733495 (Version 2)
Quarter: 2013Q4

REPORT INFORMATION
  Report Type: Spontaneous
  Country: US (occurrence: US)
  Receive Date: 20131205
  Receipt Date: 20131227
  Transmission Date: 20140711
  Serious: Yes (Disabling, Other)
  Sender: FDA-Public Use
  Company Number: US-BMSGILMSD-2013-0088866

PATIENT
  Age: 58 Year
  Sex: Male
  Weight: 89.8 kg

DRUGS (6)
  1. ATRIPLA [Suspect]
     Indication: HIV INFECTION
     Dosage: UNK
     Route: 065
  2. DILTIAZEM CRISTERS [Concomitant]
     Indication: BLOOD PRESSURE INCREASED
     Dosage: UNK
  3. LORCET                             /00607101/ [Concomitant]
     Indication: PAIN
  4. ZANAFLEX [Concomitant]
     Indication: PAIN
  5. PRAVASTATIN [Concomitant]
     Indication: PRODUCT USED FOR UNKNOWN INDICATION
  6. SUPERVIT                           /07685201/ [Concomitant]

REACTIONS (3)
  - Upper limb fracture [Not Recovered/Not Resolved]
  - Impaired healing [Not Recovered/Not Resolved]
  - Postoperative wound infection [Not Recovered/Not Resolved]
